FAERS Safety Report 11279236 (Version 2)
Quarter: 2015Q3

REPORT INFORMATION
  Report Type: Spontaneous
  Country: US (occurrence: US)
  Receive Date: 20150717
  Receipt Date: 20150928
  Transmission Date: 20151125
  Serious: No
  Sender: FDA-Public Use
  Company Number: US-ASTRAZENECA-2015SE66498

PATIENT
  Sex: Female
  Weight: 54.4 kg

DRUGS (5)
  1. SYMBICORT [Suspect]
     Active Substance: BUDESONIDE\FORMOTEROL FUMARATE DIHYDRATE
     Indication: CHEST DISCOMFORT
     Dosage: 80/4.5 2 PUFFS TWICE A DAY
     Route: 055
     Dates: start: 201503
  2. SYMBICORT [Suspect]
     Active Substance: BUDESONIDE\FORMOTEROL FUMARATE DIHYDRATE
     Indication: CHEST DISCOMFORT
     Dosage: 80/4.5 2 PUFFS TWICE A DAY
     Route: 055
     Dates: start: 201503
  3. SYMBICORT [Suspect]
     Active Substance: BUDESONIDE\FORMOTEROL FUMARATE DIHYDRATE
     Indication: BRONCHITIS CHRONIC
     Dosage: 80/4.5 2 PUFFS TWICE A DAY
     Route: 055
     Dates: start: 201503
  4. FLONASE [Concomitant]
     Active Substance: FLUTICASONE PROPIONATE
     Indication: MULTIPLE ALLERGIES
     Dosage: DAILY
     Route: 045
  5. SYMBICORT [Suspect]
     Active Substance: BUDESONIDE\FORMOTEROL FUMARATE DIHYDRATE
     Indication: BRONCHITIS CHRONIC
     Dosage: 80/4.5 2 PUFFS TWICE A DAY
     Route: 055
     Dates: start: 201503

REACTIONS (5)
  - Chest discomfort [Unknown]
  - Oropharyngeal discomfort [Unknown]
  - Product quality issue [Unknown]
  - Off label use [Unknown]
  - Product use issue [Unknown]
